FAERS Safety Report 13700209 (Version 2)
Quarter: 2017Q3

REPORT INFORMATION
  Report Type: Spontaneous
  Country: US (occurrence: US)
  Receive Date: 20170629
  Receipt Date: 20170728
  Transmission Date: 20171127
  Serious: Yes (Other)
  Sender: FDA-Public Use
  Company Number: US-TEVA-782618ACC

PATIENT
  Age: 36 Year
  Sex: Female
  Weight: 58.11 kg

DRUGS (1)
  1. PARAGARD T 380A [Suspect]
     Active Substance: COPPER
     Indication: CONTRACEPTION
     Dates: start: 20141117, end: 20170526

REACTIONS (3)
  - Ectopic pregnancy [Recovered/Resolved]
  - Maternal exposure during pregnancy [Unknown]
  - Pregnancy on contraceptive [Unknown]

NARRATIVE: CASE EVENT DATE: 20170106
